FAERS Safety Report 5822963-X (Version None)
Quarter: 2008Q3

REPORT INFORMATION
  Report Type: 
  Country: None (occurrence: None)
  Receive Date: 20080725
  Receipt Date: 20080718
  Transmission Date: 20090109
  Serious: Yes (Other)
  Sender: FDA-Public Use
  Company Number: A0739155A

PATIENT
  Age: 53 Year
  Sex: Female
  Weight: 101.8 kg

DRUGS (3)
  1. LAMICTAL [Suspect]
     Dosage: 75MGD PER DAY
     Route: 048
     Dates: start: 20070901
  2. EFFEXOR [Concomitant]
     Indication: DEPRESSION
     Dosage: 112.5MG PER DAY
     Route: 048
     Dates: start: 20060501
  3. SEROQUEL [Concomitant]
     Indication: ANXIETY
     Dosage: 25MG PER DAY
     Route: 048
     Dates: start: 20060101, end: 20080601

REACTIONS (3)
  - BREAST DISCHARGE [None]
  - MENOPAUSAL SYMPTOMS [None]
  - MENORRHAGIA [None]
